FAERS Safety Report 10574205 (Version 2)
Quarter: 2014Q4

REPORT INFORMATION
  Report Type: Spontaneous
  Country: US (occurrence: US)
  Receive Date: 20141110
  Receipt Date: 20141126
  Transmission Date: 20150529
  Serious: Yes (Death, Life-Threatening, Hospitalization, Other)
  Sender: FDA-Public Use
  Company Number: US-MERCK-1411USA003255

PATIENT
  Sex: Male
  Weight: 104.31 kg

DRUGS (3)
  1. VICTOZA [Suspect]
     Active Substance: LIRAGLUTIDE
     Indication: TYPE 2 DIABETES MELLITUS
     Dosage: 0.6 MG,/0.1
     Dates: start: 20121113, end: 20121213
  2. JANUVIA [Suspect]
     Active Substance: SITAGLIPTIN PHOSPHATE
     Indication: TYPE 2 DIABETES MELLITUS
     Dosage: 50 MG, UNK
     Route: 048
     Dates: start: 20120801, end: 20121030
  3. VICTOZA [Suspect]
     Active Substance: LIRAGLUTIDE
     Dosage: 6 MG/ML, QD
     Dates: start: 20121204, end: 20130723

REACTIONS (22)
  - Hypokalaemia [Unknown]
  - Nodule [Unknown]
  - Diverticulitis [Unknown]
  - Pancreatic carcinoma metastatic [Fatal]
  - Metastases to lung [Unknown]
  - Herpes zoster [Unknown]
  - Renal haemorrhage [Unknown]
  - Gastrooesophageal reflux disease [Unknown]
  - Anxiety [Unknown]
  - Wrist surgery [Unknown]
  - Metastases to peritoneum [Unknown]
  - Hypomagnesaemia [Unknown]
  - Type 2 diabetes mellitus [Unknown]
  - Large intestine polyp [Unknown]
  - Abdominal cavity drainage [Unknown]
  - Surgery [Unknown]
  - Metastases to liver [Unknown]
  - Tonsillectomy [Unknown]
  - Clostridium difficile colitis [Unknown]
  - Hypertension [Unknown]
  - Knee operation [Unknown]
  - Depression [Unknown]

NARRATIVE: CASE EVENT DATE: 20130719
